FAERS Safety Report 8609404-4 (Version None)
Quarter: 2012Q3

REPORT INFORMATION
  Report Type: 
  Country: None (occurrence: None)
  Receive Date: 20120821
  Receipt Date: 20120702
  Transmission Date: 20120928
  Serious: No
  Sender: FDA-Public Use
  Company Number: US-009507513-1207USA000411

PATIENT

DRUGS (1)
  1. DR. SCHOLL'S FOR HER ULTRA OVERNIGHT FOOT CREAM [Suspect]
     Indication: PRODUCT USED FOR UNKNOWN INDICATION
     Dosage: UNK, UNKNOWN
     Route: 061

REACTIONS (2)
  - DRY SKIN [None]
  - THERAPEUTIC RESPONSE DECREASED [None]
